APPROVED DRUG PRODUCT: ESMOLOL HYDROCHLORIDE
Active Ingredient: ESMOLOL HYDROCHLORIDE
Strength: 1GM/100ML
Dosage Form/Route: INJECTABLE;INJECTION
Application: A216603 | Product #001 | TE Code: AP
Applicant: AMNEAL EU LTD
Approved: Dec 13, 2022 | RLD: No | RS: No | Type: RX